FAERS Safety Report 21973061 (Version 2)
Quarter: 2023Q1

REPORT INFORMATION
  Report Type: Report from Study
  Country: FI (occurrence: FI)
  Receive Date: 20230209
  Receipt Date: 20230317
  Transmission Date: 20230418
  Serious: Yes (Hospitalization, Other)
  Sender: FDA-Public Use
  Company Number: FI-MYLANLABS-2023M1013973

PATIENT
  Sex: Female

DRUGS (2)
  1. CLOZAPINE [Suspect]
     Active Substance: CLOZAPINE
     Indication: Schizophrenia
     Dosage: 600 MILLIGRAM, QD (200 MG ON MORNINGS AND 400 MG ON EVENINGS)
     Route: 065
     Dates: end: 2023
  2. LORAZEPAM [Concomitant]
     Active Substance: LORAZEPAM
     Dosage: 1-2 MILLIGRAMS X1-2 (ONCE TO TWICE A DAY)
     Route: 048

REACTIONS (7)
  - General physical health deterioration [Unknown]
  - Antipsychotic drug level increased [Unknown]
  - Seizure [Unknown]
  - Hepatic enzyme increased [Recovering/Resolving]
  - Liver disorder [Unknown]
  - Viral infection [Unknown]
  - Off label use [Unknown]
